FAERS Safety Report 5046400-0 (Version None)
Quarter: 2006Q3

REPORT INFORMATION
  Report Type: 
  Country: None (occurrence: None)
  Receive Date: 20060710
  Receipt Date: 20060428
  Transmission Date: 20061208
  Serious: Yes (Life-Threatening)
  Sender: FDA-Public Use
  Company Number: DE-ROCHE-449521

PATIENT
  Age: 46 Year
  Sex: Male
  Weight: 62 kg

DRUGS (7)
  1. INVIRASE [Suspect]
     Route: 048
     Dates: start: 20060412, end: 20060424
  2. ANTIRETROVIRALS [Suspect]
     Indication: DRUG USE FOR UNKNOWN INDICATION
     Dosage: DRUG NAME REPORTED AS HAART.
     Route: 065
  3. VIREAD [Concomitant]
     Indication: ANTI-INFECTIVE THERAPY
  4. RITONAVIR [Concomitant]
     Indication: ANTI-INFECTIVE THERAPY
  5. ABACAVIR [Concomitant]
     Route: 048
     Dates: start: 20030822
  6. LAMIVUDINE [Concomitant]
     Route: 048
     Dates: start: 20030822
  7. EFAVIRENZ [Concomitant]
     Route: 048
     Dates: start: 20060409, end: 20060412

REACTIONS (3)
  - BLOOD CREATINE PHOSPHOKINASE INCREASED [None]
  - MYOCARDIAL INFARCTION [None]
  - RHABDOMYOLYSIS [None]
